FAERS Safety Report 4712672-2 (Version None)
Quarter: 2005Q3

REPORT INFORMATION
  Report Type: 
  Country: None (occurrence: None)
  Receive Date: 20050706
  Receipt Date: 20050411
  Transmission Date: 20060218
  Serious: Yes (Hospitalization)
  Sender: FDA-Public Use
  Company Number: US-2005-004508

PATIENT
  Age: 52 Year
  Sex: Female

DRUGS (5)
  1. CAMPATH [Suspect]
     Indication: CHRONIC LYMPHOCYTIC LEUKAEMIA
     Dosage: 30 MG, MAINTENANCE, Q3MOS, SUBCUTANEOUS
     Route: 058
     Dates: start: 20030923, end: 20050221
  2. BACTRIM DS [Concomitant]
  3. ACYCLOVIR [Concomitant]
  4. ALLOPURINOL [Concomitant]
  5. MULTIVITAMINS (RETINON, PANTHENOL) [Concomitant]

REACTIONS (5)
  - ANAEMIA [None]
  - BACTERIA BLOOD IDENTIFIED [None]
  - DIARRHOEA [None]
  - FEBRILE NEUTROPENIA [None]
  - MALIGNANT NEOPLASM PROGRESSION [None]
